FAERS Safety Report 8301714-3 (Version None)
Quarter: 2012Q2

REPORT INFORMATION
  Report Type: 
  Country: None (occurrence: None)
  Receive Date: 20120420
  Receipt Date: 20120313
  Transmission Date: 20120825
  Serious: Yes (Other)
  Sender: FDA-Public Use
  Company Number: AU-ASTRAZENECA-2012SE04977

PATIENT
  Age: 26 Year
  Sex: Female

DRUGS (1)
  1. ZOLADEX [Suspect]
     Indication: PAIN
     Route: 058
     Dates: start: 20120106

REACTIONS (2)
  - OFF LABEL USE [None]
  - MATERNAL EXPOSURE DURING PREGNANCY [None]
